FAERS Safety Report 8610245-2 (Version None)
Quarter: 2012Q3

REPORT INFORMATION
  Report Type: 
  Country: None (occurrence: None)
  Receive Date: 20120810
  Receipt Date: 20120810
  Transmission Date: 20120928
  Serious: Yes (Hospitalization)
  Sender: FDA-Public Use
  Company Number: None

PATIENT
  Sex: Male
  Weight: 90.5 kg

DRUGS (1)
  1. CISPLATIN [Suspect]
     Dosage: 418 MG

REACTIONS (2)
  - OROPHARYNGEAL PAIN [None]
  - PHARYNGITIS [None]
